FAERS Safety Report 8759332 (Version 1)
Quarter: 2012Q4

REPORT INFORMATION
  Report Type: 
  Country: CN (occurrence: CN)
  Receive Date: 20120829
  Receipt Date: 20120829
  Transmission Date: 20130627
  Serious: Yes (Hospitalization)
  Sender: FDA-Public Use
  Company Number: CN-ABBOTT-12P-035-0973622-00

PATIENT
  Age: 34 Year
  Sex: Female

DRUGS (2)
  1. DEPAKINE [Suspect]
     Indication: SCHIZOPHRENIA
     Dosage: 0.5 gram Daily
     Route: 048
     Dates: start: 20091101, end: 20100203
  2. RISPERIDONE [Suspect]
     Indication: PRODUCT USED FOR UNKNOWN INDICATION
     Route: 048
     Dates: start: 20091101

REACTIONS (2)
  - Blister [Recovering/Resolving]
  - Rash [Unknown]
